FAERS Safety Report 10168229 (Version 2)
Quarter: 2014Q2

REPORT INFORMATION
  Report Type: Spontaneous
  Country: US (occurrence: US)
  Receive Date: 20140512
  Receipt Date: 20140513
  Transmission Date: 20141212
  Serious: No
  Sender: FDA-Public Use
  Company Number: US-ASTRAZENECA-2013SE62297

PATIENT
  Age: 19244 Day
  Sex: Female
  Weight: 81.6 kg

DRUGS (2)
  1. FASLODEX [Suspect]
     Indication: BREAST CANCER
     Route: 030
     Dates: start: 20130711
  2. FASLODEX [Suspect]
     Indication: BREAST CANCER
     Route: 030
     Dates: start: 20130725

REACTIONS (4)
  - Skin warm [Unknown]
  - Rash maculo-papular [Not Recovered/Not Resolved]
  - Pruritus [Unknown]
  - Injection site rash [Recovered/Resolved]
